FAERS Safety Report 19778357 (Version 1)
Quarter: 2021Q3

REPORT INFORMATION
  Report Type: Spontaneous
  Country: US (occurrence: US)
  Receive Date: 20210830
  Receipt Date: 20210830
  Transmission Date: 20211014
  Serious: Yes (Hospitalization)
  Sender: FDA-Public Use
  Company Number: None

PATIENT
  Age: 63 Year
  Sex: Female
  Weight: 82.1 kg

DRUGS (1)
  1. LEFLUNOMIDE 20 MG [Suspect]
     Active Substance: LEFLUNOMIDE
     Indication: TRIPLE NEGATIVE BREAST CANCER
     Route: 048
     Dates: start: 20210708, end: 20210819

REACTIONS (7)
  - Hyperglycaemia [None]
  - Electrolyte imbalance [None]
  - Hypoalbuminaemia [None]
  - Wound haemorrhage [None]
  - Anaemia [None]
  - Hypokalaemia [None]
  - Hyponatraemia [None]

NARRATIVE: CASE EVENT DATE: 20210819
